FAERS Safety Report 23938518 (Version 1)
Quarter: 2024Q2

REPORT INFORMATION
  Report Type: Spontaneous
  Country: US (occurrence: None)
  Receive Date: 20240604
  Receipt Date: 20240604
  Transmission Date: 20240716
  Serious: Yes (Death)
  Sender: FDA-Public Use
  Company Number: None

PATIENT
  Age: 64 Year
  Sex: Male
  Weight: 110 kg

DRUGS (1)
  1. TECARTUS [Suspect]
     Active Substance: BREXUCABTAGENE AUTOLEUCEL
     Indication: Acute lymphocytic leukaemia
     Route: 040
     Dates: start: 20240510

REACTIONS (13)
  - Cytokine release syndrome [None]
  - Immune effector cell-associated neurotoxicity syndrome [None]
  - Clostridium bacteraemia [None]
  - Cerebral atrophy [None]
  - Coagulopathy [None]
  - Neutropenia [None]
  - Thrombocytopenia [None]
  - Anaemia [None]
  - Liver function test increased [None]
  - Acute kidney injury [None]
  - Shock [None]
  - Respiratory distress [None]
  - Upper gastrointestinal haemorrhage [None]

NARRATIVE: CASE EVENT DATE: 20240528
